FAERS Safety Report 8619072-3 (Version None)
Quarter: 2012Q3

REPORT INFORMATION
  Report Type: 
  Country: None (occurrence: None)
  Receive Date: 20120824
  Receipt Date: 20120816
  Transmission Date: 20120928
  Serious: Yes (Other)
  Sender: FDA-Public Use
  Company Number: US-BAYER-2012-077920

PATIENT
  Age: 35 Year
  Sex: Female

DRUGS (22)
  1. YASMIN [Suspect]
     Dosage: UNK
     Dates: start: 20070101
  2. CEFAZOLIN [Concomitant]
     Indication: INTRAOPERATIVE CARE
     Dosage: UNK
     Route: 042
     Dates: start: 20091222
  3. KETOROLAC [Concomitant]
     Dosage: UNK
     Dates: start: 20091222
  4. ZOFRAN [Concomitant]
     Indication: PREMEDICATION
     Dosage: 4 MG, UNK
     Route: 042
     Dates: start: 20091222
  5. M.V.I. [Concomitant]
     Dosage: 1 DAILY
     Route: 048
  6. DIETARY SUPPLEMENT [Concomitant]
     Dosage: 1 DAILY
     Route: 048
  7. MIDAZOLAM [Concomitant]
     Dosage: UNK
     Dates: start: 20091222
  8. FENTANYL [Concomitant]
     Dosage: UNK
     Dates: start: 20091222
  9. HYDROCODONE W/IBUPROFEN [Concomitant]
     Dosage: 1 TABLET, PRN
     Route: 048
  10. DROSPIRENONE AND ETHINYL ESTRADIOL [Suspect]
     Dosage: UNK
     Dates: start: 20070101
  11. PROPOFOL [Concomitant]
     Dosage: UNK
     Dates: start: 20091222
  12. LACTATED RINGER'S [Concomitant]
     Dosage: UNK
     Route: 042
     Dates: start: 20091222
  13. LORCET-HD [Concomitant]
  14. SODIUM CHLORIDE [Concomitant]
     Dosage: 0.9 %, UNK
     Route: 042
     Dates: start: 20091222
  15. XYLOCAINE [Concomitant]
     Dosage: 2 %, UNK
     Dates: start: 20091222
  16. DEXAMETHASONE [Concomitant]
     Dosage: UNK
     Dates: start: 20091222
  17. ALEVE [Concomitant]
     Dosage: OTC PRN
     Route: 048
  18. NAPROXEN [Concomitant]
     Dosage: 500 MG, UNK
  19. OXYCODONE HCL AND ACETAMINOPHEN [Concomitant]
     Dosage: 5/325
  20. YAZ [Suspect]
     Dosage: UNK
     Dates: start: 20070101
  21. FISH OIL [Concomitant]
     Dosage: 300 MG, DAILY
     Route: 048
  22. LEVAQUIN [Concomitant]
     Dosage: 500 MG DAILY
     Route: 048

REACTIONS (10)
  - DEEP VEIN THROMBOSIS [None]
  - MYOCARDIAL INFARCTION [None]
  - INJURY [None]
  - ANXIETY [None]
  - GALLBLADDER DISORDER [None]
  - ANHEDONIA [None]
  - CEREBROVASCULAR ACCIDENT [None]
  - FEAR [None]
  - PULMONARY EMBOLISM [None]
  - PAIN [None]
